FAERS Safety Report 4488381-4 (Version None)
Quarter: 2004Q4

REPORT INFORMATION
  Report Type: 
  Country: None (occurrence: None)
  Receive Date: 20041026
  Receipt Date: 20041011
  Transmission Date: 20050328
  Serious: Yes (Hospitalization)
  Sender: FDA-Public Use
  Company Number: 206108

PATIENT
  Age: 55 Year
  Sex: Male
  Weight: 90.7194 kg

DRUGS (3)
  1. AVONEX [Suspect]
     Indication: MULTIPLE SCLEROSIS
     Dosage: 30 MCG QW IM
     Route: 030
     Dates: start: 19970101, end: 20030101
  2. AVONEX [Suspect]
     Indication: MULTIPLE SCLEROSIS
     Dosage: 30 MCG QW IM
     Route: 030
     Dates: start: 20030101, end: 20040101
  3. AVONEX [Suspect]
     Indication: MULTIPLE SCLEROSIS
     Dosage: 30 MCG QW IM
     Route: 030
     Dates: start: 20040101

REACTIONS (6)
  - FALL [None]
  - INFLUENZA LIKE ILLNESS [None]
  - MENISCUS LESION [None]
  - MYOCARDIAL INFARCTION [None]
  - TENDONITIS [None]
  - VOMITING [None]
